FAERS Safety Report 7096489-2 (Version None)
Quarter: 2010Q4

REPORT INFORMATION
  Report Type: 
  Country: None (occurrence: None)
  Receive Date: 20101111
  Receipt Date: 20101104
  Transmission Date: 20110411
  Serious: Yes (Hospitalization)
  Sender: FDA-Public Use
  Company Number: A0774943A

PATIENT
  Age: 44 Year
  Sex: Male
  Weight: 93.6 kg

DRUGS (3)
  1. AVANDIA [Suspect]
     Indication: PRODUCT USED FOR UNKNOWN INDICATION
     Dosage: 4MG PER DAY
     Route: 048
     Dates: start: 20060901, end: 20070401
  2. METFORMIN [Concomitant]
  3. LIPITOR [Concomitant]

REACTIONS (3)
  - CARDIAC FLUTTER [None]
  - MYOCARDIAL INFARCTION [None]
  - MYOCARDIAL ISCHAEMIA [None]
